FAERS Safety Report 7059958-7 (Version None)
Quarter: 2010Q4

REPORT INFORMATION
  Report Type: 
  Country: None (occurrence: None)
  Receive Date: 20101025
  Receipt Date: 20101014
  Transmission Date: 20110411
  Serious: Yes (Death, Life-Threatening, Hospitalization, Other)
  Sender: FDA-Public Use
  Company Number: MX-JNJFOC-20081203449

PATIENT
  Sex: Male
  Weight: 39 kg

DRUGS (6)
  1. INTELENCE [Suspect]
     Route: 048
  2. INTELENCE [Suspect]
     Indication: HIV INFECTION
     Dosage: PATIENT WAS TAKEN HALF OF THE PRESCRIBED  DOSE DUE TO AN ERROR HE MADE IN TAKING THE MEDICATION.
     Route: 048
  3. TENOFOVIR [Suspect]
     Indication: HIV INFECTION
  4. FTC [Suspect]
     Indication: HIV INFECTION
  5. RITONAVIR [Concomitant]
     Indication: HIV INFECTION
  6. TMC114 [Concomitant]
     Indication: HIV INFECTION
     Dosage: PATIENT WAS TAKEN HALF OF THE PRESCRIBED  DOSE DUE TO AN ERROR HE MADE IN TAKING THE MEDICATION.
     Route: 048

REACTIONS (3)
  - CACHEXIA [None]
  - DEHYDRATION [None]
  - DIABETES MELLITUS INADEQUATE CONTROL [None]
